FAERS Safety Report 5031316-6 (Version None)
Quarter: 2006Q2

REPORT INFORMATION
  Report Type: 
  Country: None (occurrence: None)
  Receive Date: 20060615
  Receipt Date: 20060614
  Transmission Date: 20061013
  Serious: Yes (Other)
  Sender: FDA-Public Use
  Company Number: 220342

PATIENT
  Age: 51 Year
  Sex: Female
  Weight: 66 kg

DRUGS (2)
  1. HERCEPTIN [Suspect]
     Indication: BREAST CANCER
     Dosage: 544 MG
     Dates: start: 20050816
  2. EPIRUBICIN [Concomitant]

REACTIONS (5)
  - ANGIOPATHY [None]
  - PHLEBITIS [None]
  - SWELLING [None]
  - TENDERNESS [None]
  - VASODILATATION [None]
